FAERS Safety Report 17837082 (Version 2)
Quarter: 2020Q4

REPORT INFORMATION
  Report Type: Report from Study
  Country: CO (occurrence: CO)
  Receive Date: 20200529
  Receipt Date: 20201001
  Transmission Date: 20210113
  Serious: Yes (Other)
  Sender: FDA-Public Use
  Company Number: CO-BRISTOL-MYERS SQUIBB COMPANY-BMS-2019-001994

PATIENT
  Age: 57 Year
  Sex: Male

DRUGS (2)
  1. NIVOLUMAB [Suspect]
     Active Substance: NIVOLUMAB
     Dosage: 480 MILLIGRAM, Q4WK
     Route: 042
     Dates: start: 20170222
  2. NIVOLUMAB [Suspect]
     Active Substance: NIVOLUMAB
     Indication: MALIGNANT MELANOMA
     Dosage: 258 MG, Q2WK
     Route: 042
     Dates: start: 20170222

REACTIONS (10)
  - Skin disorder [Unknown]
  - Oral pain [Recovering/Resolving]
  - Oropharyngeal pain [Recovering/Resolving]
  - Dry skin [Recovering/Resolving]
  - Throat irritation [Recovering/Resolving]
  - Blood uric acid increased [Recovering/Resolving]
  - Headache [Recovering/Resolving]
  - Aphthous ulcer [Recovering/Resolving]
  - Gastrointestinal inflammation [Recovering/Resolving]
  - Laryngeal ulceration [Recovering/Resolving]

NARRATIVE: CASE EVENT DATE: 20181227
